FAERS Safety Report 12243043 (Version 1)
Quarter: 2016Q2

REPORT INFORMATION
  Report Type: Spontaneous
  Country: US (occurrence: US)
  Receive Date: 20160406
  Receipt Date: 20160406
  Transmission Date: 20160815
  Serious: No
  Sender: FDA-Public Use
  Company Number: US-SA-2015SA061131

PATIENT
  Age: 71 Year
  Sex: Male

DRUGS (4)
  1. ALLEGRA-D [Suspect]
     Active Substance: FEXOFENADINE\PSEUDOEPHEDRINE
     Indication: RESPIRATORY TRACT INFECTION
     Route: 048
     Dates: start: 20150316, end: 20150320
  2. ALLEGRA-D [Suspect]
     Active Substance: FEXOFENADINE\PSEUDOEPHEDRINE
     Indication: NASAL DECONGESTION THERAPY
     Route: 048
     Dates: start: 20150316, end: 20150320
  3. ALLEGRA-D [Suspect]
     Active Substance: FEXOFENADINE\PSEUDOEPHEDRINE
     Indication: NASOPHARYNGITIS
     Route: 048
     Dates: start: 20150316, end: 20150320
  4. ALLEGRA-D [Suspect]
     Active Substance: FEXOFENADINE\PSEUDOEPHEDRINE
     Indication: COUGH
     Route: 048
     Dates: start: 20150316, end: 20150320

REACTIONS (7)
  - Abdominal distension [Unknown]
  - Benign prostatic hyperplasia [Recovered/Resolved]
  - Dry mouth [Unknown]
  - Dysuria [Unknown]
  - Conjunctivitis [Unknown]
  - Abdominal pain upper [Unknown]
  - Insomnia [Unknown]

NARRATIVE: CASE EVENT DATE: 20150320
